FAERS Safety Report 9764549 (Version 1)
Quarter: 2013Q4

REPORT INFORMATION
  Report Type: Report from Study
  Country: US (occurrence: US)
  Receive Date: 20131217
  Receipt Date: 20131217
  Transmission Date: 20140711
  Serious: Yes (Other)
  Sender: FDA-Public Use
  Company Number: US-ROCHE-1313791

PATIENT
  Age: 53 Year
  Sex: Female

DRUGS (17)
  1. TRASTUZUMAB [Suspect]
     Indication: INVASIVE DUCTAL BREAST CARCINOMA
     Dosage: TO COMPLETE 1 YEAR OF THERAPY
     Route: 065
     Dates: start: 20110218
  2. CAPECITABINE [Suspect]
     Indication: INVASIVE DUCTAL BREAST CARCINOMA
     Dosage: 2000MG IN AM, 1500 MG IN EVENING, 7 ON AND 7 OFF
     Route: 065
     Dates: start: 20130713
  3. TAXOTERE [Concomitant]
     Route: 065
     Dates: start: 20121126, end: 20130422
  4. CARBOPLATIN [Concomitant]
     Dosage: AUC OF 6
     Route: 065
  5. NEULASTA [Concomitant]
     Route: 058
  6. TYKERB [Concomitant]
     Route: 065
     Dates: start: 20110311, end: 20110429
  7. ARIMIDEX [Concomitant]
     Dosage: DISCONTINUED AFTER DISEASE REOCCURENCE
     Route: 065
     Dates: end: 20121102
  8. PROLIA [Concomitant]
     Route: 065
     Dates: start: 20111209
  9. AROMASIN [Concomitant]
     Dosage: DISCONTINUED AFTER DISEASE PROGRESSION
     Route: 065
     Dates: start: 20130424, end: 201307
  10. BUPROPION HCL [Concomitant]
  11. FLEXERIL (UNITED STATES) [Concomitant]
  12. HYDROCODONE/ACETAMINOPHEN [Concomitant]
  13. LEXAPRO [Concomitant]
  14. LISINOPRIL [Concomitant]
  15. PERCOCET [Concomitant]
  16. ROBAXIN [Concomitant]
  17. VITAMIN D3 [Concomitant]

REACTIONS (18)
  - Malignant neoplasm progression [Unknown]
  - Disease recurrence [Unknown]
  - Anaemia [Unknown]
  - Rash [Unknown]
  - Neutropenia [Unknown]
  - Irritable bowel syndrome [Unknown]
  - Thrombocytopenia [Unknown]
  - Acute sinusitis [Unknown]
  - Dehydration [Unknown]
  - Senile osteoporosis [Unknown]
  - Hypoaesthesia [Unknown]
  - Paraesthesia [Unknown]
  - Diarrhoea [Unknown]
  - Lymphoedema [Unknown]
  - Emotional disorder [Unknown]
  - Pain [Unknown]
  - Laboratory test abnormal [Unknown]
  - Back pain [Unknown]
